FAERS Safety Report 15633911 (Version 1)
Quarter: 2018Q4

REPORT INFORMATION
  Report Type: Spontaneous
  Country: SE (occurrence: SE)
  Receive Date: 20181119
  Receipt Date: 20181119
  Transmission Date: 20190205
  Serious: Yes (Other)
  Sender: FDA-Public Use
  Company Number: SE-PFIZER INC-2018468944

PATIENT
  Age: 69 Year
  Sex: Male

DRUGS (1)
  1. DIFLUCAN [Suspect]
     Active Substance: FLUCONAZOLE
     Indication: ONYCHOMYCOSIS
     Dosage: 1 DF, 1X/DAY
     Route: 048
     Dates: start: 20180601, end: 20180920

REACTIONS (1)
  - Colitis microscopic [Recovered/Resolved]

NARRATIVE: CASE EVENT DATE: 201806
